FAERS Safety Report 16565076 (Version 1)
Quarter: 2019Q3

REPORT INFORMATION
  Report Type: Spontaneous
  Country: US (occurrence: US)
  Receive Date: 20190711
  Receipt Date: 20190711
  Transmission Date: 20191004
  Serious: Yes (Hospitalization)
  Sender: FDA-Public Use
  Company Number: None

PATIENT
  Age: 56 Year
  Sex: Female

DRUGS (4)
  1. HYDROXCHLOR [Concomitant]
  2. ELIQUIS [Concomitant]
     Active Substance: APIXABAN
  3. VALSARTAN. [Concomitant]
     Active Substance: VALSARTAN
  4. MYCOPHENOLATE [Suspect]
     Active Substance: MYCOPHENOLIC ACID
     Indication: GLOMERULAR VASCULAR DISORDER
     Route: 048
     Dates: start: 20171117

REACTIONS (1)
  - Appendicitis [None]

NARRATIVE: CASE EVENT DATE: 20190626
